FAERS Safety Report 19477386 (Version 1)
Quarter: 2021Q2

REPORT INFORMATION
  Report Type: Spontaneous
  Country: US (occurrence: US)
  Receive Date: 20210630
  Receipt Date: 20210630
  Transmission Date: 20210717
  Serious: No
  Sender: FDA-Public Use
  Company Number: None

PATIENT
  Age: 59 Year
  Sex: Male
  Weight: 146 kg

DRUGS (2)
  1. WARFARIN (WARFARIN NA (EXELAN) 5MG TAB) [Suspect]
     Active Substance: WARFARIN SODIUM
     Indication: ATRIAL FIBRILLATION
     Route: 048
     Dates: start: 20210430, end: 20210610
  2. WARFARIN (WARFARIN NA (EXELAN) 5MG TAB) [Suspect]
     Active Substance: WARFARIN SODIUM
     Indication: MITRAL VALVE INCOMPETENCE
     Route: 048
     Dates: start: 20210430, end: 20210610

REACTIONS (8)
  - Haematocrit decreased [None]
  - Contusion [None]
  - Abdominal wall haematoma [None]
  - Haemoglobin decreased [None]
  - Abdominal pain [None]
  - Haemorrhage [None]
  - International normalised ratio increased [None]
  - Fall [None]

NARRATIVE: CASE EVENT DATE: 20210610
